FAERS Safety Report 9156625 (Version 2)
Quarter: 2013Q2

REPORT INFORMATION
  Report Type: Spontaneous
  Country: US (occurrence: None)
  Receive Date: 20130208
  Receipt Date: 20130624
  Transmission Date: 20140414
  Serious: Yes (Hospitalization)
  Sender: FDA-Public Use
  Company Number: ACO_33917_2012

PATIENT
  Age: 56 Year
  Sex: Male

DRUGS (9)
  1. AMPYRA [Suspect]
     Indication: PRODUCT USED FOR UNKNOWN INDICATION
     Dates: start: 201004, end: 201009
  2. AMPYRA [Suspect]
     Indication: GAIT SPASTIC
     Dates: start: 201004, end: 201009
  3. AMPYRA [Suspect]
     Indication: MULTIPLE SCLEROSIS
     Dates: start: 201004, end: 201009
  4. BACLOFEN [Concomitant]
  5. LIPITOR (ATORVASTATIN CALCIUM) [Concomitant]
  6. COUMADIN (WARFARIN SODIUM) [Concomitant]
  7. NEURONTIN (GABAPENTIN) [Concomitant]
  8. VITAMIN D (ERGOCALCIFEROL) [Concomitant]
  9. OXYBUTYNIN CHLORIDE [Concomitant]

REACTIONS (8)
  - Meningitis aseptic [None]
  - Bedridden [None]
  - Abnormal dreams [None]
  - Walking aid user [None]
  - Multiple sclerosis relapse [None]
  - Dizziness [None]
  - No therapeutic response [None]
  - Drug ineffective [None]
